FAERS Safety Report 6835898-0 (Version None)
Quarter: 2010Q3

REPORT INFORMATION
  Report Type: 
  Country: None (occurrence: None)
  Receive Date: 20100713
  Receipt Date: 20100706
  Transmission Date: 20110219
  Serious: Yes (Hospitalization)
  Sender: FDA-Public Use
  Company Number: US-SANOFI-AVENTIS-2010SA039305

PATIENT
  Age: 69 Year
  Sex: Male

DRUGS (9)
  1. LANTUS [Suspect]
     Indication: TYPE 2 DIABETES MELLITUS
     Dosage: DOSE:25 UNIT(S)
     Route: 058
     Dates: start: 20100522
  2. SOLOSTAR [Suspect]
     Indication: TYPE 2 DIABETES MELLITUS
     Dates: start: 20100522
  3. METOPROLOL [Concomitant]
  4. ASPIRIN [Concomitant]
     Dosage: INCREASED FROM 81 MG TO 325 MG AFTER BYPASS
  5. SIMVASTATIN [Concomitant]
     Dosage: REDUCED FROM 80 MG TO 40 MG AFTER STARTING MULTAQ
  6. AMLODIPINE [Concomitant]
  7. FOLIC ACID [Concomitant]
  8. GLIPIZIDE [Concomitant]
  9. ACTOS [Concomitant]

REACTIONS (2)
  - ATRIAL FIBRILLATION [None]
  - HEART RATE INCREASED [None]
